FAERS Safety Report 5452822-6 (Version None)
Quarter: 2007Q3

REPORT INFORMATION
  Report Type: 
  Country: None (occurrence: None)
  Receive Date: 20070914
  Receipt Date: 20070904
  Transmission Date: 20080115
  Serious: Yes (Hospitalization)
  Sender: FDA-Public Use
  Company Number: FR-ROCHE-481479

PATIENT
  Age: 68 Year
  Sex: Female

DRUGS (9)
  1. PEG-INTERFERON ALFA 2A (RO 25-8310) [Suspect]
     Route: 058
     Dates: start: 20060810, end: 20070124
  2. RIBAVIRIN [Suspect]
     Route: 048
     Dates: start: 20060810, end: 20070124
  3. BLINDED THYMOSIN ALFA 1 [Suspect]
     Route: 058
     Dates: start: 20060810, end: 20070124
  4. LODOZ [Concomitant]
     Indication: HYPERTENSION
     Route: 048
     Dates: start: 20050101
  5. MEDIATOR [Concomitant]
     Indication: HYPERLIPIDAEMIA
     Route: 048
     Dates: start: 20040101
  6. ROHYPNOL [Concomitant]
     Indication: INSOMNIA
     Route: 048
  7. THERALENE [Concomitant]
     Dosage: GIVEN IN THE EVENING.
     Route: 048
  8. BUFLOMEDIL [Concomitant]
     Route: 048
  9. BENFLUOREX [Concomitant]

REACTIONS (9)
  - ARRHYTHMIA SUPRAVENTRICULAR [None]
  - HAEMATOCRIT DECREASED [None]
  - HAEMOGLOBIN DECREASED [None]
  - LEFT ATRIAL DILATATION [None]
  - PERIPHERAL ARTERIAL OCCLUSIVE DISEASE [None]
  - PLATELET COUNT DECREASED [None]
  - RETINOPATHY HYPERTENSIVE [None]
  - TRANSIENT ISCHAEMIC ATTACK [None]
  - VENTRICULAR HYPERTROPHY [None]
